FAERS Safety Report 12927725 (Version 1)
Quarter: 2016Q4

REPORT INFORMATION
  Report Type: Spontaneous
  Country: US (occurrence: US)
  Receive Date: 20161110
  Receipt Date: 20161110
  Transmission Date: 20170207
  Serious: Yes (Other)
  Sender: FDA-Public Use
  Company Number: None

PATIENT
  Age: 38 Year
  Sex: Male
  Weight: 99.6 kg

DRUGS (8)
  1. BENDAMUSTINE 200 MG [Suspect]
     Active Substance: BENDAMUSTINE
     Indication: HODGKIN^S DISEASE
     Dosage: 200 MG IN NACL 0.9% 63 ML ONCE IV INFUSION OVER 60 MINUTES
     Route: 042
     Dates: start: 20160420, end: 20160616
  2. URSODIOL. [Concomitant]
     Active Substance: URSODIOL
  3. OXYCODONE [Concomitant]
     Active Substance: OXYCODONE
  4. PROCHLORPERAZINE. [Concomitant]
     Active Substance: PROCHLORPERAZINE
  5. TRAMADOL. [Concomitant]
     Active Substance: TRAMADOL
  6. DOCUSATE SODIUM. [Concomitant]
     Active Substance: DOCUSATE SODIUM
  7. ACETAMINOPHEN. [Concomitant]
     Active Substance: ACETAMINOPHEN
  8. CYCLOBENZAPRINE [Concomitant]
     Active Substance: CYCLOBENZAPRINE

REACTIONS (1)
  - Pain [None]

NARRATIVE: CASE EVENT DATE: 20160519
